FAERS Safety Report 12657388 (Version 1)
Quarter: 2016Q3

REPORT INFORMATION
  Report Type: Spontaneous
  Country: CH (occurrence: CH)
  Receive Date: 20160816
  Receipt Date: 20160816
  Transmission Date: 20161109
  Serious: Yes (Death, Hospitalization, Other)
  Sender: FDA-Public Use
  Company Number: CH-TEVA-682801ISR

PATIENT
  Age: 78 Year
  Sex: Female

DRUGS (6)
  1. CLOPIN ECO 100 [Interacting]
     Active Substance: CLOZAPINE
     Route: 048
  2. MADOPAR 62.5 [Concomitant]
     Active Substance: BENSERAZIDE HYDROCHLORIDE\LEVODOPA
     Dosage: 2 DOSAGE FORMS DAILY; 1 DF = 50 MG LEVODOPA + 12.5 MG BENSERAZIDE
     Route: 048
  3. ORFIRIL [Concomitant]
     Active Substance: VALPROIC ACID
     Dosage: 10 ML DAILY; 1 DF = 50 MG LEVODOPA + 12.5 MG BENSERAZIDE
     Route: 048
  4. MADOPAR 125 [Concomitant]
     Dosage: 1 DOSAGE FORMS DAILY; 1 DF = 100 MG LEVODOPA + 25 MG BENSERAZIDE
     Route: 048
     Dates: end: 201606
  5. CITALOPRAM-MEPHA LACTAB [Suspect]
     Active Substance: CITALOPRAM HYDROBROMIDE
     Dosage: 10 MILLIGRAM DAILY; STRENGTH 20 MG, START DATE UNKNOWN
     Route: 048
     Dates: end: 201606
  6. PRIMPERAN [Interacting]
     Active Substance: METOCLOPRAMIDE HYDROCHLORIDE
     Dosage: 30 ML DAILY; START DATE UNKNOWN
     Route: 048
     Dates: end: 201606

REACTIONS (2)
  - Drug interaction [Recovered/Resolved]
  - Extrapyramidal disorder [Fatal]

NARRATIVE: CASE EVENT DATE: 20160620
